FAERS Safety Report 10174592 (Version 7)
Quarter: 2015Q2

REPORT INFORMATION
  Report Type: Spontaneous
  Country: US (occurrence: US)
  Receive Date: 20140515
  Receipt Date: 20150609
  Transmission Date: 20150821
  Serious: Yes (Hospitalization, Other)
  Sender: FDA-Public Use
  Company Number: US-GLAXOSMITHKLINE-A1027292A

PATIENT
  Age: 35 Year
  Sex: Female

DRUGS (12)
  1. FLOLAN [Suspect]
     Active Substance: EPOPROSTENOL SODIUM
     Indication: PULMONARY ARTERIAL HYPERTENSION
     Dosage: 40 NG/KG/ MINUTE CONTINUOUSLY, CONCENTRATION 75,000 NG/ML, VIAL STRENGTH 1.5 MG60 NG/KG/MIN CON[...]
     Route: 042
     Dates: start: 20090226
  2. ADCIRCA [Concomitant]
     Active Substance: TADALAFIL
  3. COUMADIN [Concomitant]
     Active Substance: WARFARIN SODIUM
  4. FLOLAN [Suspect]
     Active Substance: EPOPROSTENOL SODIUM
     Dosage: UNK
     Dates: start: 20090226
  5. FLOLAN [Suspect]
     Active Substance: EPOPROSTENOL SODIUM
     Dosage: UNK
  6. FLOLAN [Suspect]
     Active Substance: EPOPROSTENOL SODIUM
     Dosage: 60 NG/KG/ MINUTE CONTINUOUSLY, CONCENTRATION 20,000 NG/ML, VIAL STRENGTH 1.5 MG
     Route: 042
  7. FLOLAN [Suspect]
     Active Substance: EPOPROSTENOL SODIUM
     Dosage: UNK
     Dates: start: 20090226
  8. FLOLAN [Suspect]
     Active Substance: EPOPROSTENOL SODIUM
     Dosage: UNK
     Dates: start: 20090226
  9. FLOLAN [Suspect]
     Active Substance: EPOPROSTENOL SODIUM
     Dosage: UNK
     Dates: start: 20090226
  10. FLOLAN [Suspect]
     Active Substance: EPOPROSTENOL SODIUM
     Dosage: UNK
     Dates: start: 20090226
  11. FLOLAN [Suspect]
     Active Substance: EPOPROSTENOL SODIUM
     Dosage: UNK
     Dates: start: 20090226
  12. LETAIRIS [Concomitant]
     Active Substance: AMBRISENTAN

REACTIONS (16)
  - Influenza like illness [Unknown]
  - Intra-abdominal haemorrhage [Unknown]
  - Tonsillitis [Recovered/Resolved]
  - Infusion site pruritus [Recovered/Resolved]
  - Nausea [Unknown]
  - Malaise [Unknown]
  - Hospitalisation [Unknown]
  - Central venous catheterisation [Unknown]
  - Nasopharyngitis [Recovered/Resolved]
  - Diarrhoea [Unknown]
  - Device breakage [Recovered/Resolved]
  - Blood disorder [Recovered/Resolved]
  - Vomiting [Unknown]
  - Application site irritation [Recovered/Resolved]
  - Thyroid function test abnormal [Recovered/Resolved]
  - Memory impairment [Unknown]

NARRATIVE: CASE EVENT DATE: 20140425
